FAERS Safety Report 13960654 (Version 1)
Quarter: 2017Q3

REPORT INFORMATION
  Report Type: Spontaneous
  Country: US (occurrence: US)
  Receive Date: 20170912
  Receipt Date: 20170912
  Transmission Date: 20171128
  Serious: No
  Sender: FDA-Public Use
  Company Number: US-ALLERGAN-1706083US

PATIENT
  Sex: Female
  Weight: 58.96 kg

DRUGS (1)
  1. LEXAPRO [Suspect]
     Active Substance: ESCITALOPRAM OXALATE
     Indication: ANXIETY
     Dosage: 10 MG, QD
     Route: 065

REACTIONS (3)
  - Drug dose omission [Unknown]
  - Alopecia [Not Recovered/Not Resolved]
  - Vision blurred [Unknown]
